FAERS Safety Report 11481670 (Version 2)
Quarter: 2015Q3

REPORT INFORMATION
  Report Type: Spontaneous
  Country: US (occurrence: US)
  Receive Date: 20150903
  Receipt Date: 20150903
  Transmission Date: 20151125
  Serious: No
  Sender: FDA-Public Use
  Company Number: US-ELI_LILLY_AND_COMPANY-US201203004238

PATIENT
  Age: 65 Year
  Sex: Female

DRUGS (2)
  1. NEURONTIN [Concomitant]
     Active Substance: GABAPENTIN
  2. CYMBALTA [Suspect]
     Active Substance: DULOXETINE HYDROCHLORIDE
     Indication: MUSCULOSKELETAL PAIN
     Dosage: 60 MG, QD
     Dates: start: 201110

REACTIONS (8)
  - Abdominal pain [Unknown]
  - Malaise [Unknown]
  - Drug dose omission [Recovered/Resolved]
  - Diarrhoea [Unknown]
  - Feeling abnormal [Unknown]
  - Weight increased [Unknown]
  - Flatulence [Unknown]
  - Dizziness [Unknown]

NARRATIVE: CASE EVENT DATE: 201201
